FAERS Safety Report 4781289-6 (Version None)
Quarter: 2005Q3

REPORT INFORMATION
  Report Type: 
  Country: None (occurrence: None)
  Receive Date: 20050926
  Receipt Date: 20050926
  Transmission Date: 20060218
  Serious: Yes (Death)
  Sender: FDA-Public Use
  Company Number: None

PATIENT
  Age: 81 Year
  Sex: Male
  Weight: 90 kg

DRUGS (11)
  1. IODINE CONTRAST DYE [Suspect]
     Indication: PULMONARY EMBOLISM
     Dosage: USED IN CT SCAN FOR PE
     Dates: start: 20050609
  2. GENTAMICIN/VANCOMYCIN [Suspect]
     Indication: HIP ARTHROPLASTY
     Dosage: 80MG/1GM
     Dates: start: 20050602, end: 20050611
  3. CEFIPIME [Concomitant]
  4. DILTIAZEM [Concomitant]
  5. WARFARIN SODIUM [Concomitant]
  6. BACTRIM [Concomitant]
  7. OMEPRAZOLE [Concomitant]
  8. FUROSEMIDE [Concomitant]
  9. METOPROLOL [Concomitant]
  10. METHYLPREDNISOLONE [Concomitant]
  11. NALOXONE [Concomitant]

REACTIONS (15)
  - ACUTE PRERENAL FAILURE [None]
  - CANDIDIASIS [None]
  - CONFUSIONAL STATE [None]
  - CONTRAST MEDIA REACTION [None]
  - DIALYSIS [None]
  - DYSPNOEA [None]
  - MULTI-ORGAN DISORDER [None]
  - NEPHROPATHY [None]
  - PNEUMONIA [None]
  - PULMONARY FUNCTION TEST DECREASED [None]
  - RENAL FAILURE ACUTE [None]
  - RESPIRATORY ACIDOSIS [None]
  - THROMBOSIS [None]
  - URINARY TRACT INFECTION [None]
  - URINE OUTPUT DECREASED [None]
